FAERS Safety Report 14725562 (Version 1)
Quarter: 2018Q2

REPORT INFORMATION
  Report Type: Spontaneous
  Country: US (occurrence: US)
  Receive Date: 20180406
  Receipt Date: 20180406
  Transmission Date: 20180711
  Serious: Yes (Other)
  Sender: FDA-Public Use
  Company Number: US-ALEMBIC PHARMACUETICALS LIMITED-2018SCAL000235

PATIENT

DRUGS (1)
  1. THEOPHYLLINE ANHYDROUS. [Suspect]
     Active Substance: THEOPHYLLINE ANHYDROUS
     Indication: BRONCHIECTASIS
     Dosage: UNK
     Route: 048
     Dates: start: 2017

REACTIONS (2)
  - Heart rate irregular [Not Recovered/Not Resolved]
  - Cardiac disorder [Not Recovered/Not Resolved]

NARRATIVE: CASE EVENT DATE: 2017
